FAERS Safety Report 5557982-4 (Version None)
Quarter: 2007Q4

REPORT INFORMATION
  Report Type: 
  Country: None (occurrence: None)
  Receive Date: 20071214
  Receipt Date: 20071204
  Transmission Date: 20080405
  Serious: Yes (Death, Hospitalization, Other)
  Sender: FDA-Public Use
  Company Number: US-PURDUE-USA_2007_0030470

PATIENT
  Age: 26 Year
  Sex: Male

DRUGS (2)
  1. TRAMADOL HCL [Concomitant]
     Indication: DRUG ABUSE
     Dosage: UNK MG, UNK
     Route: 048
  2. OXYCONTIN [Suspect]
     Indication: DRUG ABUSE
     Dosage: UNK MG, UNK
     Route: 048

REACTIONS (3)
  - DRUG ABUSE [None]
  - DRUG DEPENDENCE [None]
  - GUN SHOT WOUND [None]
